FAERS Safety Report 9255270 (Version 1)
Quarter: 2013Q2

REPORT INFORMATION
  Report Type: Spontaneous
  Country: RU (occurrence: RU)
  Receive Date: 20130425
  Receipt Date: 20130425
  Transmission Date: 20140414
  Serious: Yes (Other)
  Sender: FDA-Public Use
  Company Number: RU-JNJFOC-20130309161

PATIENT
  Age: 50 Year
  Sex: Female

DRUGS (1)
  1. CAELYX [Suspect]
     Indication: SARCOMA
     Dosage: 2 COURSES
     Route: 042

REACTIONS (3)
  - Toxic epidermal necrolysis [Recovered/Resolved]
  - Palmar-plantar erythrodysaesthesia syndrome [Recovered/Resolved]
  - Stomatitis [Recovered/Resolved]
